FAERS Safety Report 8370133-6 (Version None)
Quarter: 2012Q2

REPORT INFORMATION
  Report Type: 
  Country: None (occurrence: None)
  Receive Date: 20120518
  Receipt Date: 20120515
  Transmission Date: 20120825
  Serious: Yes (Hospitalization)
  Sender: FDA-Public Use
  Company Number: CN-JNJFOC-20120500433

PATIENT
  Sex: Female
  Weight: 57 kg

DRUGS (2)
  1. MICONAZOLE [Suspect]
     Route: 067
  2. MICONAZOLE [Suspect]
     Indication: VULVOVAGINAL CANDIDIASIS
     Dosage: ONCE A DAY
     Route: 067
     Dates: start: 20110215, end: 20110216

REACTIONS (2)
  - VULVOVAGINAL PRURITUS [None]
  - OEDEMA GENITAL [None]
